FAERS Safety Report 25438997 (Version 1)
Quarter: 2025Q2

REPORT INFORMATION
  Report Type: Spontaneous
  Country: US (occurrence: None)
  Receive Date: 20250614
  Receipt Date: 20250614
  Transmission Date: 20250716
  Serious: No
  Sender: FDA-CTU
  Company Number: None

PATIENT
  Age: 39 Year
  Sex: Female

DRUGS (1)
  1. BUSPAR [Suspect]
     Active Substance: BUSPIRONE HYDROCHLORIDE
     Dates: start: 20250409, end: 20250609

REACTIONS (8)
  - Fungal infection [None]
  - Constipation [None]
  - Intrusive thoughts [None]
  - Muscular weakness [None]
  - Muscular weakness [None]
  - Brain fog [None]
  - Fatigue [None]
  - Memory impairment [None]

NARRATIVE: CASE EVENT DATE: 20250601
